FAERS Safety Report 13722346 (Version 3)
Quarter: 2017Q3

REPORT INFORMATION
  Report Type: Report from Study
  Country: US (occurrence: US)
  Receive Date: 20170706
  Receipt Date: 20170816
  Transmission Date: 20171127
  Serious: Yes (Other)
  Sender: FDA-Public Use
  Company Number: PHHO2012US020473

PATIENT
  Age: 52 Year
  Sex: Female
  Weight: 62.1 kg

DRUGS (8)
  1. GSK2118436 [Suspect]
     Active Substance: DABRAFENIB
     Dosage: 150 MG, UNK
     Route: 048
     Dates: start: 20120107, end: 20120108
  2. GSK1120212 [Suspect]
     Active Substance: TRAMETINIB
     Indication: METASTATIC MALIGNANT MELANOMA
     Dosage: 2 MG, QD
     Route: 048
     Dates: start: 20111202
  3. GSK2118436 [Suspect]
     Active Substance: DABRAFENIB
     Dosage: 150 MG, UNK
     Route: 048
     Dates: start: 20120113, end: 20120119
  4. GSK1120212 [Suspect]
     Active Substance: TRAMETINIB
     Dosage: 2 MG, UNK
     Route: 048
     Dates: start: 20120107, end: 20120108
  5. GSK2118436 [Suspect]
     Active Substance: DABRAFENIB
     Indication: METASTATIC MALIGNANT MELANOMA
     Dosage: 75 MG, BID
     Route: 048
     Dates: start: 20111202
  6. GSK2118436 [Suspect]
     Active Substance: DABRAFENIB
     Dosage: 100 MG, EVERYDAY
     Route: 048
     Dates: start: 20120120, end: 20120124
  7. GSK1120212 [Suspect]
     Active Substance: TRAMETINIB
     Dosage: 2 MG, EVERYDAY
     Route: 048
     Dates: start: 20120110, end: 20120124
  8. GSK1120212 [Suspect]
     Active Substance: TRAMETINIB
     Dosage: 2 MG, EVERYDAY
     Route: 048
     Dates: start: 20120109, end: 20120112

REACTIONS (4)
  - Chills [Recovered/Resolved]
  - Pyrexia [Recovered/Resolved]
  - Chills [Recovered/Resolved]
  - Pyrexia [Recovered/Resolved]

NARRATIVE: CASE EVENT DATE: 20120107
